FAERS Safety Report 11145700 (Version 1)
Quarter: 2015Q2

REPORT INFORMATION
  Report Type: Spontaneous
  Country: DE (occurrence: FR)
  Receive Date: 20150528
  Receipt Date: 20150528
  Transmission Date: 20150821
  Serious: Yes (Hospitalization)
  Sender: FDA-Public Use
  Company Number: DE-ACTELION-A-NJ2015-118614

PATIENT
  Age: 67 Year
  Sex: Male

DRUGS (16)
  1. CORDARONE [Concomitant]
     Active Substance: AMIODARONE HYDROCHLORIDE
  2. EUPANTOL [Concomitant]
     Active Substance: PANTOPRAZOLE SODIUM
  3. VENTAVIS [Suspect]
     Active Substance: ILOPROST
     Indication: PULMONARY ARTERIAL HYPERTENSION
     Dosage: 5 MCG, 6 X DAY
     Route: 055
     Dates: start: 20120402
  4. LEVOTHYROX [Concomitant]
     Active Substance: LEVOTHYROXINE
  5. IMOVANE [Concomitant]
     Active Substance: ZOPICLONE
  6. PRADAXA [Suspect]
     Active Substance: DABIGATRAN ETEXILATE MESYLATE
     Indication: ATRIAL FIBRILLATION
     Dosage: 110 MG, BID
     Route: 065
     Dates: start: 201206, end: 20120714
  7. CRESTOR [Concomitant]
     Active Substance: ROSUVASTATIN CALCIUM
  8. SPIRIVA [Concomitant]
     Active Substance: TIOTROPIUM BROMIDE MONOHYDRATE
  9. IXPRIM [Concomitant]
     Active Substance: ACETAMINOPHEN\TRAMADOL HYDROCHLORIDE
  10. NOVOMIX [Concomitant]
     Active Substance: INSULIN ASPART
  11. LASILIX [Concomitant]
     Active Substance: FUROSEMIDE
  12. TEMESTA [Concomitant]
     Active Substance: LORAZEPAM
  13. JOSIR [Concomitant]
     Active Substance: TAMSULOSIN
  14. KARDEGIC [Suspect]
     Active Substance: ASPIRIN LYSINE
     Indication: ISCHAEMIC STROKE
     Dosage: 75 MG, QD
     Route: 048
     Dates: end: 20120714
  15. STABLON [Concomitant]
     Active Substance: TIANEPTINE
  16. FORLAX [Concomitant]
     Active Substance: POLYETHYLENE GLYCOL 4000

REACTIONS (1)
  - Haemorrhage [Recovered/Resolved]

NARRATIVE: CASE EVENT DATE: 20120714
